FAERS Safety Report 6892349-8 (Version None)
Quarter: 2010Q3

REPORT INFORMATION
  Report Type: 
  Country: None (occurrence: None)
  Receive Date: 20100731
  Receipt Date: 20080418
  Transmission Date: 20110219
  Serious: No
  Sender: FDA-Public Use
  Company Number: US-PFIZER INC-2008034651

PATIENT
  Sex: Male
  Weight: 86.4 kg

DRUGS (4)
  1. NORVASC [Suspect]
     Indication: HYPERTENSION
  2. AMLODIPINE [Suspect]
     Indication: HYPERTENSION
     Dates: start: 20070101, end: 20070101
  3. PREVACID [Concomitant]
  4. VITAMINS [Concomitant]

REACTIONS (3)
  - FEELING ABNORMAL [None]
  - HYPERSENSITIVITY [None]
  - MALAISE [None]
